FAERS Safety Report 4613556-0 (Version None)
Quarter: 2005Q1

REPORT INFORMATION
  Report Type: 
  Country: None (occurrence: None)
  Receive Date: 20050321
  Receipt Date: 20050314
  Transmission Date: 20050727
  Serious: Yes (Other)
  Sender: FDA-Public Use
  Company Number: 200512034US

PATIENT
  Sex: Female
  Weight: 100 kg

DRUGS (9)
  1. ARAVA [Suspect]
     Indication: JUVENILE ARTHRITIS
     Route: 048
     Dates: start: 20040801, end: 20040901
  2. MULTIVITAMINS, PLAIN [Concomitant]
     Dosage: DOSE: NOT PROVIDED
  3. FOLIC ACID [Concomitant]
     Dosage: DOSE: NOT PROVIDED
  4. PREDNISONE [Concomitant]
     Dosage: DOSE: NOT PROVIDED
  5. PROZAC [Concomitant]
     Dosage: DOSE: NOT PROVIDED
  6. IBUPROFEN [Concomitant]
     Dosage: DOSE: NOT PROVIDED
  7. MYLANTA [Concomitant]
     Dosage: DOSE: NOT PROVIDED
     Dates: start: 20041101
  8. STOOL SOFTENER [Concomitant]
     Dosage: DOSE: NOT PROVIDED
     Dates: start: 20041101
  9. CHOLESTYRAMINE [Concomitant]
     Dosage: DOSE: NOT PROVIDED
     Dates: start: 20041123, end: 20041204

REACTIONS (3)
  - ABORTION SPONTANEOUS [None]
  - DRUG EXPOSURE DURING PREGNANCY [None]
  - PREGNANCY [None]
